FAERS Safety Report 10286177 (Version 1)
Quarter: 2014Q3

REPORT INFORMATION
  Report Type: Spontaneous
  Country: JP (occurrence: None)
  Receive Date: 20140703
  Receipt Date: 20140703
  Transmission Date: 20150326
  Serious: Yes (Other)
  Sender: FDA-Public Use
  Company Number: 2014JP00589

PATIENT
  Sex: Male

DRUGS (2)
  1. CARBOPLATIN (CARBOPLATIN) INJECTION [Suspect]
     Active Substance: CARBOPLATIN
     Indication: SMALL CELL LUNG CANCER
     Dosage: AUC 4 ON DAY 1 EVERY 21 DAYS, INTRAVENOUS
     Route: 042
  2. IRINOTECAN (IRINOTECAN) INJECTION, 180 MG/M2 [Suspect]
     Active Substance: IRINOTECAN
     Indication: SMALL CELL LUNG CANCER
     Dosage: 50 MG/M2, DAYS 1 AND 8 EVERY 3 WEEKS FOR FOUR COURSES, INTRAVENOUS
     Route: 042

REACTIONS (3)
  - Inappropriate antidiuretic hormone secretion [None]
  - Paraneoplastic syndrome [None]
  - Hyponatraemia [None]
